FAERS Safety Report 11175593 (Version 1)
Quarter: 2015Q2

REPORT INFORMATION
  Report Type: Report from Study
  Country: IL (occurrence: IL)
  Receive Date: 20150609
  Receipt Date: 20150609
  Transmission Date: 20150821
  Serious: Yes (Hospitalization)
  Sender: FDA-Public Use
  Company Number: IL-ABBVIE-15K-082-1402418-00

PATIENT
  Age: 14 Year
  Sex: Male

DRUGS (3)
  1. PNEUMOVAX 23 [Suspect]
     Active Substance: PNEUMOCOCCAL VACCINE, POLYVALENT 23
     Indication: PNEUMONIA
     Route: 065
     Dates: start: 20150530, end: 20150530
  2. PNEUMOVAX 23 [Suspect]
     Active Substance: PNEUMOCOCCAL VACCINE, POLYVALENT 23
     Indication: PROPHYLAXIS
  3. HUMIRA [Suspect]
     Active Substance: ADALIMUMAB
     Indication: CROHN^S DISEASE
     Route: 058
     Dates: start: 20150504

REACTIONS (5)
  - Vaccination site erythema [Unknown]
  - Pyrexia [Unknown]
  - Feeling abnormal [Unknown]
  - Vaccination site swelling [Unknown]
  - Vomiting [Unknown]

NARRATIVE: CASE EVENT DATE: 2015
